FAERS Safety Report 24661402 (Version 1)
Quarter: 2024Q4

REPORT INFORMATION
  Report Type: Spontaneous
  Country: US (occurrence: US)
  Receive Date: 20241125
  Receipt Date: 20241125
  Transmission Date: 20250115
  Serious: No
  Sender: PFIZER
  Company Number: US-PFIZER INC-202400307527

PATIENT
  Age: 73 Year
  Sex: Female
  Weight: 58.06 kg

DRUGS (1)
  1. PREMARIN [Suspect]
     Active Substance: ESTROGENS, CONJUGATED
     Indication: Urinary tract infection
     Dosage: 0.625MG/GM 2-3 TIMES A WEEK

REACTIONS (1)
  - Alopecia [Unknown]
